FAERS Safety Report 6743279-3 (Version None)
Quarter: 2010Q2

REPORT INFORMATION
  Report Type: 
  Country: None (occurrence: None)
  Receive Date: 20100525
  Receipt Date: 20100518
  Transmission Date: 20101027
  Serious: Yes (Hospitalization)
  Sender: FDA-Public Use
  Company Number: CIP10001105

PATIENT
  Age: 81 Year
  Sex: Female

DRUGS (7)
  1. RISEDRONATE SODIUM [Suspect]
     Indication: OSTEOPOROSIS
     Dosage: 17.5 MG WEEKLY, ORAL
     Route: 048
     Dates: start: 20100422
  2. CANDESARTAN CILEXETIL [Concomitant]
  3. METFORMIN HYDROCHLORIDE [Concomitant]
  4. AMARYL [Concomitant]
  5. BASEN (VOGLIBOSE) [Concomitant]
  6. ACTOS [Concomitant]
  7. SORENTMIN (BROTIZOLAM) [Concomitant]

REACTIONS (3)
  - CONDITION AGGRAVATED [None]
  - DIABETES MELLITUS [None]
  - INTERSTITIAL LUNG DISEASE [None]
